FAERS Safety Report 8080540-7 (Version None)
Quarter: 2012Q1

REPORT INFORMATION
  Report Type: 
  Country: None (occurrence: None)
  Receive Date: 20120130
  Receipt Date: 20120126
  Transmission Date: 20120608
  Serious: Yes (Death)
  Sender: FDA-Public Use
  Company Number: US-CELGENEUS-163-21880-12011079

PATIENT
  Sex: Male

DRUGS (9)
  1. FAMCICLOVIR [Concomitant]
     Route: 065
  2. ASPIRIN [Concomitant]
     Route: 065
  3. ALLOPURINOL [Concomitant]
     Route: 065
  4. FISH OIL [Concomitant]
     Route: 065
  5. CENTRUM [Concomitant]
     Route: 065
  6. IRON [Concomitant]
     Route: 065
  7. SIMVASTATIN [Concomitant]
     Route: 065
  8. REVLIMID [Suspect]
     Indication: NON-HODGKIN'S LYMPHOMA
     Dosage: 10 MILLIGRAM
     Route: 048
     Dates: start: 20111208, end: 20111219
  9. MIRALAX [Concomitant]
     Route: 065

REACTIONS (1)
  - LYMPHOMA [None]
